FAERS Safety Report 14897606 (Version 2)
Quarter: 2018Q2

REPORT INFORMATION
  Report Type: Report from Study
  Country: US (occurrence: US)
  Receive Date: 20180515
  Receipt Date: 20180531
  Transmission Date: 20180711
  Serious: Yes (Other)
  Sender: FDA-Public Use
  Company Number: US-JNJFOC-20180509766

PATIENT
  Sex: Male
  Weight: 106.14 kg

DRUGS (1)
  1. STELARA [Suspect]
     Active Substance: USTEKINUMAB
     Indication: CROHN^S DISEASE
     Route: 042
     Dates: start: 201603

REACTIONS (2)
  - Perirectal abscess [Recovering/Resolving]
  - Proctitis ulcerative [Recovering/Resolving]
